FAERS Safety Report 17056857 (Version 3)
Quarter: 2020Q1

REPORT INFORMATION
  Report Type: Spontaneous
  Country: US (occurrence: US)
  Receive Date: 20191121
  Receipt Date: 20200103
  Transmission Date: 20200409
  Serious: Yes (Hospitalization)
  Sender: FDA-Public Use
  Company Number: US-ASTRAZENECA-2019SF63432

PATIENT
  Age: 939 Month
  Sex: Female
  Weight: 62.1 kg

DRUGS (1)
  1. SYMBICORT [Suspect]
     Active Substance: BUDESONIDE\FORMOTEROL FUMARATE DIHYDRATE
     Indication: CHRONIC OBSTRUCTIVE PULMONARY DISEASE
     Dosage: 160/4.5 MCG 120 INHALATIONS UNKNOWN
     Route: 055

REACTIONS (8)
  - Fall [Unknown]
  - Device issue [Unknown]
  - Arthralgia [Unknown]
  - Dyspnoea [Unknown]
  - Somnolence [Unknown]
  - Dyspnoea exertional [Unknown]
  - Hip fracture [Unknown]
  - Intentional device misuse [Unknown]

NARRATIVE: CASE EVENT DATE: 201901
